FAERS Safety Report 10885259 (Version 1)
Quarter: 2015Q1

REPORT INFORMATION
  Report Type: Spontaneous
  Country: US (occurrence: None)
  Receive Date: 20150227
  Receipt Date: 20150227
  Transmission Date: 20150721
  Serious: Yes (Life-Threatening, Hospitalization)
  Sender: FDA-Public Use
  Company Number: None

PATIENT
  Age: 60 Year
  Sex: Female
  Weight: 73 kg

DRUGS (2)
  1. CYMBALTA [Suspect]
     Active Substance: DULOXETINE HYDROCHLORIDE
     Indication: DEPRESSION
     Route: 048
     Dates: start: 20150116, end: 20150203
  2. CYMBALTA [Suspect]
     Active Substance: DULOXETINE HYDROCHLORIDE
     Indication: PAIN
     Route: 048
     Dates: start: 20150116, end: 20150203

REACTIONS (7)
  - Alanine aminotransferase increased [None]
  - Blood bilirubin increased [None]
  - Aspartate aminotransferase increased [None]
  - Jaundice [None]
  - Blood sodium decreased [None]
  - Gamma-glutamyltransferase increased [None]
  - Ocular icterus [None]

NARRATIVE: CASE EVENT DATE: 20150203
